FAERS Safety Report 8215329-9 (Version None)
Quarter: 2012Q1

REPORT INFORMATION
  Report Type: 
  Country: None (occurrence: None)
  Receive Date: 20120316
  Receipt Date: 20120308
  Transmission Date: 20120608
  Serious: Yes (Hospitalization, Other)
  Sender: FDA-Public Use
  Company Number: US-BAYER-2012-012435

PATIENT
  Age: 34 Year
  Sex: Female
  Weight: 57.72 kg

DRUGS (14)
  1. ASPIRIN [Concomitant]
     Dosage: 81 MG, QD
     Route: 048
  2. DIPHENHYDRAMINE HCL [Concomitant]
     Indication: HYPERSENSITIVITY
     Dosage: 25 MG, PRN
     Route: 048
  3. SARGRAMOSTIM [Suspect]
     Indication: MALIGNANT MELANOMA
     Dosage: 250 ?G/D, QD (DAYS 1-14)
     Route: 058
     Dates: start: 20110804
  4. SARGRAMOSTIM [Suspect]
     Dosage: 250 ?G/D, QD (DAYS 1-14)
     Route: 058
     Dates: start: 20120119, end: 20120201
  5. WELLBUTRIN [Concomitant]
     Dosage: 100 MG, QD
  6. MDX-010 [Suspect]
     Indication: MALIGNANT MELANOMA
     Dosage: 10 MG/KG (DAY 1, Q12WKS)
     Route: 042
     Dates: start: 20110804, end: 20110804
  7. MDX-010 [Suspect]
     Dosage: 10 MG/KG (DAY 1, Q12WKS)
     Route: 042
     Dates: start: 20111229, end: 20111229
  8. ASCORBIC ACID [Concomitant]
  9. VITAMIN D [Concomitant]
  10. SELENIUM [Concomitant]
  11. MULTI-VITAMINS [Concomitant]
  12. KLONOPIN [Concomitant]
     Indication: ANXIETY
     Dosage: 1 MG, Q 4-6 HOURS
  13. PRILOSEC [Concomitant]
     Dosage: 20 MG, QD
  14. EXTRA STRENGTH TYLENOL [Concomitant]
     Indication: PAIN
     Dosage: 500 MG, PRN
     Route: 048

REACTIONS (5)
  - NAUSEA [None]
  - COLITIS [None]
  - DIARRHOEA [None]
  - ABDOMINAL DISCOMFORT [None]
  - URINARY TRACT INFECTION [None]
